FAERS Safety Report 8296543-3 (Version None)
Quarter: 2012Q2

REPORT INFORMATION
  Report Type: 
  Country: None (occurrence: None)
  Receive Date: 20120418
  Receipt Date: 20120412
  Transmission Date: 20120825
  Serious: Yes (Hospitalization)
  Sender: FDA-Public Use
  Company Number: US-B.I. PHARMACEUTICALS,INC./RIDGEFIELD-2012-BP-07104BP

PATIENT
  Sex: Male

DRUGS (4)
  1. ADVAIR DISKUS 100/50 [Concomitant]
  2. CARDIZEM [Concomitant]
  3. PRADAXA [Suspect]
  4. TIKOSYN [Suspect]
     Indication: CARDIAC DISORDER
     Dosage: 1 MG
     Route: 048
     Dates: start: 20120212

REACTIONS (4)
  - DIZZINESS [None]
  - SKIN EXFOLIATION [None]
  - FATIGUE [None]
  - ATRIAL FIBRILLATION [None]
